FAERS Safety Report 25863172 (Version 1)
Quarter: 2025Q3

REPORT INFORMATION
  Report Type: Spontaneous
  Country: US (occurrence: US)
  Receive Date: 20250930
  Receipt Date: 20250930
  Transmission Date: 20251021
  Serious: Yes (Hospitalization, Disabling, Other)
  Sender: SHILPA MEDICARE
  Company Number: US-MLMSERVICE-20250904-PI632212-00165-1

PATIENT
  Age: 57 Year
  Sex: Female

DRUGS (2)
  1. GEMCITABINE [Suspect]
     Active Substance: GEMCITABINE
     Indication: Adenocarcinoma pancreas
  2. DILAUDID [Concomitant]
     Active Substance: HYDROMORPHONE HYDROCHLORIDE
     Indication: Abdominal pain

REACTIONS (4)
  - Anosognosia [Recovering/Resolving]
  - Toxicity to various agents [Unknown]
  - Blindness cortical [Recovering/Resolving]
  - Posterior reversible encephalopathy syndrome [Recovering/Resolving]
